FAERS Safety Report 6845626-0 (Version None)
Quarter: 2010Q3

REPORT INFORMATION
  Report Type: 
  Country: None (occurrence: None)
  Receive Date: 20100715
  Receipt Date: 20070823
  Transmission Date: 20110219
  Serious: No
  Sender: FDA-Public Use
  Company Number: US-PFIZER INC-2007072023

PATIENT
  Sex: Male
  Weight: 79.5 kg

DRUGS (10)
  1. CHANTIX [Suspect]
     Indication: SMOKING CESSATION THERAPY
     Route: 048
     Dates: start: 20070601
  2. THEOPHYLLINE [Concomitant]
  3. BISOPROLOL [Concomitant]
  4. ACEON [Concomitant]
  5. PLAVIX [Concomitant]
  6. WELLBUTRIN [Concomitant]
     Indication: SMOKING CESSATION THERAPY
  7. DUONEB [Concomitant]
  8. COMBIVENT [Concomitant]
  9. ADVAIR DISKUS 100/50 [Concomitant]
  10. PRAVACHOL [Concomitant]

REACTIONS (5)
  - ABNORMAL DREAMS [None]
  - CONSTIPATION [None]
  - DEPRESSION [None]
  - FLATULENCE [None]
  - NAUSEA [None]
